FAERS Safety Report 24608454 (Version 3)
Quarter: 2025Q1

REPORT INFORMATION
  Report Type: Spontaneous
  Country: GR (occurrence: GR)
  Receive Date: 20241112
  Receipt Date: 20250317
  Transmission Date: 20250409
  Serious: No
  Sender: PFIZER
  Company Number: GR-PFIZER INC-202400293673

PATIENT
  Age: 4 Year
  Sex: Female
  Weight: 15.5 kg

DRUGS (1)
  1. GENOTROPIN [Suspect]
     Active Substance: SOMATROPIN
     Indication: Turner^s syndrome
     Dosage: 0.6 MG OR 0.7 MG
     Route: 058
     Dates: start: 202406

REACTIONS (1)
  - Device leakage [Unknown]
